FAERS Safety Report 18969570 (Version 3)
Quarter: 2022Q1

REPORT INFORMATION
  Report Type: Spontaneous
  Country: US (occurrence: US)
  Receive Date: 20210304
  Receipt Date: 20220331
  Transmission Date: 20220423
  Serious: No
  Sender: FDA-Public Use
  Company Number: US-PFIZER INC-2021160492

PATIENT
  Age: 58 Year
  Sex: Female
  Weight: 81.633 kg

DRUGS (3)
  1. IBRANCE [Suspect]
     Active Substance: PALBOCICLIB
     Indication: Breast cancer female
     Dosage: 125 MG
     Route: 048
     Dates: start: 20201217
  2. IBRANCE [Suspect]
     Active Substance: PALBOCICLIB
     Indication: Pulmonary embolism
     Dosage: 100 MG, DAILY
     Route: 048
     Dates: start: 20201217
  3. IBRANCE [Suspect]
     Active Substance: PALBOCICLIB
     Dosage: 100 MG, CYCLIC (1 TAB FOR 21 DAYS)
     Route: 048

REACTIONS (4)
  - Nausea [Unknown]
  - Back pain [Unknown]
  - Bone pain [Unknown]
  - Neutrophil count decreased [Unknown]
